FAERS Safety Report 4398039-8 (Version None)
Quarter: 2004Q3

REPORT INFORMATION
  Report Type: 
  Country: None (occurrence: None)
  Receive Date: 20040715
  Receipt Date: 20040616
  Transmission Date: 20050211
  Serious: Yes (Other)
  Sender: FDA-Public Use
  Company Number: PHBS2004IT07926

PATIENT
  Age: 49 Year
  Sex: Female

DRUGS (5)
  1. CYCLOSPORINE [Suspect]
     Indication: LIVER TRANSPLANT
     Dosage: 300 MG, BID
     Route: 065
  2. CYCLOSPORINE [Suspect]
     Dosage: 1000 MG/D
     Route: 065
  3. AZATHIOPRINE [Concomitant]
     Indication: LIVER TRANSPLANT
     Dosage: 50 MG/D
     Route: 065
  4. HYDROCORTISONE [Concomitant]
     Indication: LIVER TRANSPLANT
     Dosage: 100 MG, BID
     Route: 065
  5. FLUCONAZOLE [Concomitant]
     Dosage: 100 MG, BID
     Route: 042

REACTIONS (13)
  - ABNORMAL BEHAVIOUR [None]
  - ANXIETY [None]
  - CEREBELLAR ATROPHY [None]
  - CEREBELLAR SYNDROME [None]
  - CEREBRAL ATROPHY [None]
  - DELIRIUM [None]
  - DELUSIONAL DISORDER, PERSECUTORY TYPE [None]
  - FUNGUS URINE TEST POSITIVE [None]
  - HALLUCINATIONS, MIXED [None]
  - HYPOACUSIS [None]
  - INSOMNIA [None]
  - NYSTAGMUS [None]
  - PSYCHOMOTOR AGITATION [None]
